FAERS Safety Report 23136092 (Version 1)
Quarter: 2023Q4

REPORT INFORMATION
  Report Type: Report from Study
  Country: CN (occurrence: CN)
  Receive Date: 20231102
  Receipt Date: 20231102
  Transmission Date: 20240110
  Serious: Yes (Other)
  Sender: FDA-Public Use
  Company Number: CN-SA-2023SA331160

PATIENT

DRUGS (3)
  1. DOCETAXEL [Suspect]
     Active Substance: DOCETAXEL\DOCETAXEL ANHYDROUS
     Indication: Oesophageal squamous cell carcinoma
     Dosage: 75 MG/M2, Q3W
     Route: 042
  2. CARBOPLATIN [Suspect]
     Active Substance: CARBOPLATIN
     Indication: Oesophageal squamous cell carcinoma
     Dosage: AUC= 5-6 IV Q3W
  3. CAMRELIZUMAB [Suspect]
     Active Substance: CAMRELIZUMAB
     Indication: Oesophageal squamous cell carcinoma
     Dosage: 200 MG, Q3W
     Route: 042

REACTIONS (1)
  - Guillain-Barre syndrome [Unknown]
